FAERS Safety Report 13882394 (Version 2)
Quarter: 2017Q3

REPORT INFORMATION
  Report Type: Spontaneous
  Country: FR (occurrence: FR)
  Receive Date: 20170818
  Receipt Date: 20170927
  Transmission Date: 20171127
  Serious: Yes (Other)
  Sender: FDA-Public Use
  Company Number: PHHY2017FR120453

PATIENT

DRUGS (6)
  1. AMVISC [Concomitant]
     Indication: INTRAOPERATIVE CARE
     Dosage: UNK
     Route: 047
     Dates: start: 20170628, end: 20170628
  2. BSS [Suspect]
     Active Substance: CALCIUM CHLORIDE\MAGNESIUM CHLORIDE\POTASSIUM CHLORIDE\SODIUM ACETATE\SODIUM CHLORIDE\SODIUM CITRATE
     Indication: EYE IRRIGATION
     Dosage: UNK
     Route: 031
  3. APROKAM [Concomitant]
     Active Substance: CEFUROXIME SODIUM
     Indication: INTRAOPERATIVE CARE
     Route: 031
  4. OXYBUPROCAINE [Concomitant]
     Active Substance: BENOXINATE
     Indication: INTRAOPERATIVE CARE
     Route: 047
     Dates: start: 20170628, end: 20170628
  5. MYDRIATICUM [Concomitant]
     Active Substance: TROPICAMIDE
     Indication: INTRAOPERATIVE CARE
     Route: 047
     Dates: start: 20170628, end: 20170628
  6. NEOSYNEPHRINE [Concomitant]
     Active Substance: PHENYLEPHRINE HYDROCHLORIDE
     Indication: INTRAOPERATIVE CARE
     Dosage: UNK
     Route: 047
     Dates: start: 20170628, end: 20170628

REACTIONS (1)
  - Toxic anterior segment syndrome [Unknown]
